FAERS Safety Report 11409576 (Version 1)
Quarter: 2015Q3

REPORT INFORMATION
  Report Type: Report from Study
  Country: MX (occurrence: MX)
  Receive Date: 20150824
  Receipt Date: 20150824
  Transmission Date: 20151125
  Serious: Yes (Death)
  Sender: FDA-Public Use
  Company Number: PHHY2015MX099588

PATIENT
  Sex: Male

DRUGS (2)
  1. TRILEPTAL [Suspect]
     Active Substance: OXCARBAZEPINE
     Indication: PRODUCT USED FOR UNKNOWN INDICATION
     Dosage: 1 DF (300 MG), QD
     Route: 048
     Dates: end: 20150710
  2. DAFLON                             /01026201/ [Concomitant]
     Active Substance: DIOSMIN\HESPERIDIN
     Indication: CARDIOVASCULAR INSUFFICIENCY
     Dosage: 1 DF (750 MG), Q12H
     Route: 048

REACTIONS (3)
  - Brain injury [Fatal]
  - Diabetic complication [Fatal]
  - Respiratory arrest [Fatal]
